FAERS Safety Report 6394043-9 (Version None)
Quarter: 2009Q4

REPORT INFORMATION
  Report Type: 
  Country: None (occurrence: None)
  Receive Date: 20091008
  Receipt Date: 20091006
  Transmission Date: 20100525
  Serious: Yes (Death, Hospitalization)
  Sender: FDA-Public Use
  Company Number: PHHO2007DE17111

PATIENT
  Sex: Female
  Weight: 70 kg

DRUGS (4)
  1. RAD 666 RAD+TAB [Suspect]
     Indication: RENAL TRANSPLANT
     Dosage: 1.5 MG/DAILY
     Route: 048
     Dates: start: 20070913, end: 20071022
  2. MYFORTIC [Suspect]
     Indication: RENAL TRANSPLANT
     Dosage: STUDY MEDICATION
     Dates: start: 20070913, end: 20071022
  3. MYFORTIC [Suspect]
     Dosage: NON-STUDY MEDICATION
  4. CERTICAN [Suspect]
     Dosage: NON-STUDY MEDICATION

REACTIONS (18)
  - ACIDOSIS [None]
  - ANGINA PECTORIS [None]
  - CARDIAC ARREST [None]
  - CARDIAC FAILURE [None]
  - CORONARY ARTERY BYPASS [None]
  - CORONARY ARTERY DISEASE [None]
  - DIARRHOEA [None]
  - DYSPNOEA [None]
  - ENDOCARDITIS [None]
  - ENTEROCOLITIS INFECTIOUS [None]
  - HERPES SIMPLEX [None]
  - METABOLIC DISORDER [None]
  - MULTI-ORGAN FAILURE [None]
  - PNEUMONIA [None]
  - RENAL FAILURE [None]
  - RESPIRATORY ARREST [None]
  - SEPSIS [None]
  - WOUND INFECTION STAPHYLOCOCCAL [None]
